FAERS Safety Report 5016433-9 (Version None)
Quarter: 2006Q2

REPORT INFORMATION
  Report Type: 
  Country: None (occurrence: None)
  Receive Date: 20060531
  Receipt Date: 20060531
  Transmission Date: 20061013
  Serious: Yes (Life-Threatening)
  Sender: FDA-Public Use
  Company Number: None

PATIENT
  Age: 38 Year
  Sex: Male

DRUGS (4)
  1. ACETAMINOPHEN [Suspect]
     Indication: ANAPHYLACTIC SHOCK
     Dosage: 325-650 MG Q 4-6HR  PRN  PO
     Route: 048
     Dates: start: 20060427, end: 20060427
  2. LACTULOSE [Concomitant]
  3. MILK OF MAGNESIUM [Concomitant]
  4. HEPARIN [Concomitant]

REACTIONS (7)
  - ANAPHYLACTIC SHOCK [None]
  - CONTRAINDICATION TO MEDICAL TREATMENT [None]
  - DYSPNOEA [None]
  - ERYTHEMA [None]
  - HYPOTENSION [None]
  - MEDICATION ERROR [None]
  - OEDEMA [None]
